FAERS Safety Report 20572530 (Version 1)
Quarter: 2022Q1

REPORT INFORMATION
  Report Type: Spontaneous
  Country: ES (occurrence: ES)
  Receive Date: 20220309
  Receipt Date: 20220309
  Transmission Date: 20220423
  Serious: Yes (Death, Hospitalization, Other)
  Sender: FDA-Public Use
  Company Number: ES-AUROBINDO-AUR-APL-2019-026578

PATIENT
  Age: 75 Year
  Sex: Female

DRUGS (6)
  1. EPLERENONE [Interacting]
     Active Substance: EPLERENONE
     Indication: Product used for unknown indication
     Dosage: UNK
     Route: 065
     Dates: start: 20170829, end: 20180112
  2. FUROSEMIDE [Interacting]
     Active Substance: FUROSEMIDE
     Indication: Product used for unknown indication
     Dosage: UNK,1-0-0
     Route: 065
     Dates: start: 20170829, end: 20180116
  3. CEFALO [Concomitant]
     Indication: Product used for unknown indication
     Dosage: UNK(THERE ARE NO DATA IN CLINICAL HISTORY OR HORUS)
     Route: 065
     Dates: start: 20180108, end: 20180111
  4. ENOXAPARIN [Concomitant]
     Active Substance: ENOXAPARIN
     Indication: Product used for unknown indication
     Dosage: UNK
     Route: 065
     Dates: start: 20170825, end: 20180116
  5. LEVOTHYROXINE SODIUM [Concomitant]
     Active Substance: LEVOTHYROXINE SODIUM
     Indication: Product used for unknown indication
     Dosage: UNK
     Route: 065
     Dates: start: 20161202, end: 20180116
  6. SIMVASTATIN [Concomitant]
     Active Substance: SIMVASTATIN
     Indication: Product used for unknown indication
     Dosage: UNK
     Route: 065
     Dates: start: 20161202, end: 20180116

REACTIONS (2)
  - Acute kidney injury [Fatal]
  - Hyperkalaemia [Fatal]

NARRATIVE: CASE EVENT DATE: 20180111
